FAERS Safety Report 5266407-8 (Version None)
Quarter: 2007Q1

REPORT INFORMATION
  Report Type: 
  Country: None (occurrence: None)
  Receive Date: 20070315
  Receipt Date: 20070122
  Transmission Date: 20070707
  Serious: No
  Sender: FDA-Public Use
  Company Number: US-GLAXOSMITHKLINE-A0636534A

PATIENT
  Age: 44 Year
  Sex: Male

DRUGS (9)
  1. FLOVENT [Suspect]
     Indication: MULTIPLE ALLERGIES
     Dosage: 4SPR TWICE PER DAY
     Route: 065
     Dates: start: 20070118
  2. ADVAIR DISKUS 100/50 [Concomitant]
     Indication: ASTHMA
  3. CLARITIN [Concomitant]
  4. NIFEDIPINE [Concomitant]
  5. HYDROCHLOROTHIAZIDE [Concomitant]
  6. CELEBREX [Concomitant]
  7. FISH OIL [Concomitant]
  8. VITAMIN E [Concomitant]
  9. VITAMIN [Concomitant]

REACTIONS (1)
  - MEDICATION ERROR [None]
